FAERS Safety Report 7603113-6 (Version None)
Quarter: 2011Q3

REPORT INFORMATION
  Report Type: 
  Country: None (occurrence: None)
  Receive Date: 20110712
  Receipt Date: 20110701
  Transmission Date: 20111222
  Serious: Yes (Other)
  Sender: FDA-Public Use
  Company Number: JP-PFIZER INC-2011156010

PATIENT
  Age: 69 Year
  Sex: Male

DRUGS (1)
  1. CELECOXIB [Suspect]
     Dosage: 100 MG, UNK
     Route: 048

REACTIONS (1)
  - DRUG ERUPTION [None]
